FAERS Safety Report 6029065-0 (Version None)
Quarter: 2009Q1

REPORT INFORMATION
  Report Type: 
  Country: None (occurrence: None)
  Receive Date: 20090106
  Receipt Date: 20081229
  Transmission Date: 20090719
  Serious: Yes (Life-Threatening)
  Sender: FDA-Public Use
  Company Number: JP-ELI_LILLY_AND_COMPANY-JP200812005627

PATIENT
  Sex: Female

DRUGS (11)
  1. EVISTA [Suspect]
     Indication: OSTEOPOROSIS
     Dosage: 60 MG, DAILY (1/D)
     Route: 048
     Dates: end: 20081114
  2. ACINON [Concomitant]
     Indication: GASTRITIS
     Dosage: 150 MG, 2/D
     Route: 048
     Dates: start: 20080322, end: 20081114
  3. RANDA [Concomitant]
     Indication: LUNG NEOPLASM MALIGNANT
     Dosage: 110 MG, OTHER
     Route: 042
     Dates: start: 20081112
  4. NAVELBINE [Concomitant]
     Indication: LUNG NEOPLASM MALIGNANT
     Dosage: 35 MG, OTHER
     Route: 042
     Dates: start: 20081112
  5. STARSIS [Concomitant]
     Indication: DIABETES MELLITUS
     Dosage: 90 MG, 3/D
     Route: 048
     Dates: end: 20081114
  6. PROMAC [Concomitant]
     Indication: GASTRITIS
     Dosage: 75 MG, 2/D
     Route: 048
     Dates: end: 20081114
  7. SOLANAX [Concomitant]
     Indication: CONSTIPATION
     Dosage: 0.4 MG, DAILY (1/D)
     Route: 048
     Dates: end: 20081114
  8. PURSENNID [Concomitant]
     Indication: CONSTIPATION
     Dosage: 12 MG, DAILY (1/D)
     Route: 048
     Dates: end: 20081114
  9. HIBON [Concomitant]
     Indication: HYPERCHOLESTEROLAEMIA
     Dosage: 40 MG, 3/D
     Route: 048
     Dates: end: 20081114
  10. WARKMIN [Concomitant]
     Indication: OSTEOPOROSIS
     Dosage: 1 UG, DAILY (1/D)
     Route: 048
     Dates: end: 20081114
  11. CLARITHROMYCIN [Concomitant]
     Indication: BRONCHIECTASIS
     Dosage: 200 MG, 2/D
     Route: 048
     Dates: end: 20081114

REACTIONS (1)
  - PLATELET COUNT DECREASED [None]
